FAERS Safety Report 18724565 (Version 4)
Quarter: 2023Q1

REPORT INFORMATION
  Report Type: Spontaneous
  Country: US (occurrence: US)
  Receive Date: 20210111
  Receipt Date: 20230214
  Transmission Date: 20230417
  Serious: Yes (Hospitalization, Other)
  Sender: FDA-Public Use
  Company Number: US-PFIZER INC-2020465360

PATIENT
  Age: 69 Year
  Sex: Female
  Weight: 81.633 kg

DRUGS (2)
  1. XELJANZ [Suspect]
     Active Substance: TOFACITINIB CITRATE
     Indication: Rheumatoid arthritis
     Dosage: 5 MG, 2X/DAY
     Route: 048
     Dates: start: 20200303
  2. XELJANZ [Suspect]
     Active Substance: TOFACITINIB CITRATE
     Dosage: 5 MG, 1X/DAY (TAKING ONE TABLET A DAY)

REACTIONS (6)
  - Rotator cuff syndrome [Recovered/Resolved]
  - Bone disorder [Recovered/Resolved]
  - Limb injury [Recovered/Resolved]
  - Depression [Not Recovered/Not Resolved]
  - Eye infection [Unknown]
  - Oral candidiasis [Unknown]

NARRATIVE: CASE EVENT DATE: 20200724
